FAERS Safety Report 8392883-8 (Version None)
Quarter: 2012Q2

REPORT INFORMATION
  Report Type: 
  Country: None (occurrence: None)
  Receive Date: 20120529
  Receipt Date: 20120227
  Transmission Date: 20120825
  Serious: No
  Sender: FDA-Public Use
  Company Number: US-MYLANLABS-2012S1004069

PATIENT
  Age: 45 Year
  Sex: Female

DRUGS (2)
  1. ZOLPIDEM TARTRATE [Suspect]
     Indication: INSOMNIA
     Route: 048
     Dates: start: 20120217, end: 20120223
  2. LISINOPRIL [Concomitant]

REACTIONS (5)
  - PARAESTHESIA [None]
  - INSOMNIA [None]
  - RESTLESSNESS [None]
  - DRUG INEFFECTIVE [None]
  - NERVOUSNESS [None]
